FAERS Safety Report 23367499 (Version 1)
Quarter: 2024Q1

REPORT INFORMATION
  Report Type: Spontaneous
  Country: DE (occurrence: DE)
  Receive Date: 20240104
  Receipt Date: 20240104
  Transmission Date: 20240409
  Serious: Yes (Life-Threatening, Hospitalization, Other)
  Sender: FDA-Public Use
  Company Number: DE-SA-2024SA000213

PATIENT
  Age: 64 Year
  Sex: Female

DRUGS (1)
  1. LIBTAYO [Suspect]
     Active Substance: CEMIPLIMAB-RWLC
     Indication: Squamous cell carcinoma of skin
     Dosage: 350 MG, 1X
     Dates: start: 2022, end: 2022

REACTIONS (13)
  - Subacute cutaneous lupus erythematosus [Recovered/Resolved]
  - Rash pruritic [Recovered/Resolved]
  - Macule [Recovered/Resolved]
  - Papule [Recovered/Resolved]
  - Rash erythematous [Recovered/Resolved]
  - Rash [Recovered/Resolved]
  - Dermatitis [Recovered/Resolved]
  - Follicular mucinosis [Recovered/Resolved]
  - Acanthosis [Recovered/Resolved]
  - Parakeratosis [Recovered/Resolved]
  - Psoriasis [Recovered/Resolved]
  - Immune-mediated hepatitis [Recovered/Resolved]
  - Upper respiratory tract infection [Recovered/Resolved]

NARRATIVE: CASE EVENT DATE: 20220101
